FAERS Safety Report 5041776-2 (Version None)
Quarter: 2006Q2

REPORT INFORMATION
  Report Type: 
  Country: None (occurrence: None)
  Receive Date: 20060630
  Receipt Date: 20060621
  Transmission Date: 20061013
  Serious: Yes (Hospitalization)
  Sender: FDA-Public Use
  Company Number: 200614268BWH

PATIENT
  Age: 57 Year
  Sex: Male

DRUGS (7)
  1. DACARBAZINE [Suspect]
     Indication: METASTATIC MALIGNANT MELANOMA
     Dosage: SEE IMAGE
     Route: 042
     Dates: start: 20030630, end: 20030703
  2. DACARBAZINE [Suspect]
     Indication: METASTATIC MALIGNANT MELANOMA
     Dosage: SEE IMAGE
     Route: 042
     Dates: start: 20030728, end: 20030801
  3. DACARBAZINE [Suspect]
     Indication: METASTATIC MALIGNANT MELANOMA
     Dosage: SEE IMAGE
     Route: 042
     Dates: start: 20030825, end: 20030827
  4. MDX - 010 (BMS734016 - (IPILIMUMAB) (UNCODEABLE ^INVESTIGATIONAL DRUG^ [Suspect]
     Indication: METASTATIC MALIGNANT MELANOMA
     Dosage: SEE IMAGE
     Route: 042
     Dates: start: 20030630
  5. MDX - 010 (BMS734016 - (IPILIMUMAB) (UNCODEABLE ^INVESTIGATIONAL DRUG^ [Suspect]
     Indication: METASTATIC MALIGNANT MELANOMA
     Dosage: SEE IMAGE
     Route: 042
     Dates: start: 20030728
  6. MDX - 010 (BMS734016 - (IPILIMUMAB) (UNCODEABLE ^INVESTIGATIONAL DRUG^ [Suspect]
     Indication: METASTATIC MALIGNANT MELANOMA
     Dosage: SEE IMAGE
     Route: 042
     Dates: start: 20030825
  7. LOTENSIN [Concomitant]

REACTIONS (9)
  - CEREBRAL ISCHAEMIA [None]
  - DEHYDRATION [None]
  - HAEMATOCRIT DECREASED [None]
  - HAEMOGLOBIN DECREASED [None]
  - NEUTROPHIL COUNT DECREASED [None]
  - PYREXIA [None]
  - RED BLOOD CELL COUNT DECREASED [None]
  - SYNCOPE [None]
  - WHITE BLOOD CELL COUNT DECREASED [None]
